FAERS Safety Report 25866240 (Version 5)
Quarter: 2025Q4

REPORT INFORMATION
  Report Type: Spontaneous
  Country: CA (occurrence: CA)
  Receive Date: 20250930
  Receipt Date: 20251021
  Transmission Date: 20260117
  Serious: Yes (Hospitalization, Other)
  Sender: PFIZER
  Company Number: CA-PFIZER INC-202500193027

PATIENT
  Age: 72 Year
  Sex: Female

DRUGS (13)
  1. RUXIENCE [Suspect]
     Active Substance: RITUXIMAB-PVVR
     Indication: Granulomatosis with polyangiitis
     Dosage: 500 MG
     Route: 042
     Dates: start: 20210720, end: 20210720
  2. RUXIENCE [Suspect]
     Active Substance: RITUXIMAB-PVVR
     Dosage: 500 MG, RETREATMENT, SINGLE DOSE
     Route: 042
     Dates: start: 20220414, end: 20220414
  3. RUXIENCE [Suspect]
     Active Substance: RITUXIMAB-PVVR
     Dosage: 500 MG, SINGLE, ONE TIME DOSE
     Route: 042
     Dates: start: 20221205, end: 20221205
  4. RUXIENCE [Suspect]
     Active Substance: RITUXIMAB-PVVR
     Dosage: 500 MG, SINGLE (500 MG, FOR ONE DOSE)
     Route: 042
     Dates: start: 20230630, end: 20230630
  5. RUXIENCE [Suspect]
     Active Substance: RITUXIMAB-PVVR
     Dosage: 500 MG, SINGLE (500 MG, ANNUALLY FOR ONE DOSE)
     Route: 042
     Dates: start: 20240606, end: 20240606
  6. RUXIENCE [Suspect]
     Active Substance: RITUXIMAB-PVVR
     Dosage: 500 MG, SINGLE (500 MG, FOR ONE DOSE)
     Route: 042
     Dates: start: 20250709, end: 20250709
  7. RUXIENCE [Suspect]
     Active Substance: RITUXIMAB-PVVR
     Dosage: 600 MG, WEEKLY X 4 WEEKS
     Route: 042
     Dates: start: 20250918, end: 20250926
  8. RUXIENCE [Suspect]
     Active Substance: RITUXIMAB-PVVR
     Dosage: 600 MG, WEEKLY X 4 WEEKS
     Route: 042
     Dates: start: 20250918, end: 20250926
  9. RUXIENCE [Suspect]
     Active Substance: RITUXIMAB-PVVR
     Dosage: 600 MG, AFTER 3 WEEKS (WEEKLY X 4 WEEK)
     Route: 042
     Dates: start: 20251009, end: 20251009
  10. RUXIENCE [Suspect]
     Active Substance: RITUXIMAB-PVVR
     Dosage: 600 MG, AFTER 3 WEEKS( WEEKLY X 4 WEEK)
     Route: 042
     Dates: start: 20251009, end: 20251009
  11. RUXIENCE [Suspect]
     Active Substance: RITUXIMAB-PVVR
     Dosage: 600 MG, WEEKLY, (600 MG, WEEKLY X 4 WEEKS)
     Route: 042
     Dates: start: 20251016
  12. RUXIENCE [Suspect]
     Active Substance: RITUXIMAB-PVVR
     Dosage: 600 MG, WEEKLY, ( (600 MG, WEEKLY X 4 WEEKS)
     Route: 042
     Dates: start: 20251016
  13. PREDNISOLONE [Concomitant]
     Active Substance: PREDNISOLONE
     Dosage: UNK

REACTIONS (5)
  - Pulmonary embolism [Unknown]
  - Haematochezia [Unknown]
  - Loss of consciousness [Unknown]
  - Vomiting [Unknown]
  - Dizziness [Unknown]

NARRATIVE: CASE EVENT DATE: 20250101
